FAERS Safety Report 23563469 (Version 2)
Quarter: 2024Q1

REPORT INFORMATION
  Report Type: Report from Study
  Country: JP (occurrence: JP)
  Receive Date: 20240226
  Receipt Date: 20240228
  Transmission Date: 20240410
  Serious: Yes (Death, Hospitalization, Other)
  Sender: FDA-Public Use
  Company Number: JP-Merck Healthcare KGaA-2024008688

PATIENT
  Age: 81 Year
  Sex: Male
  Weight: 60 kg

DRUGS (1)
  1. BAVENCIO [Suspect]
     Active Substance: AVELUMAB
     Indication: Transitional cell carcinoma
     Route: 041
     Dates: start: 20231026, end: 20240105

REACTIONS (4)
  - Hepatic function abnormal [Fatal]
  - Hyperkalaemia [Unknown]
  - Pancreatitis [Recovering/Resolving]
  - Hepatitis fulminant [Unknown]

NARRATIVE: CASE EVENT DATE: 20240126
